FAERS Safety Report 5777497-8 (Version None)
Quarter: 2008Q2

REPORT INFORMATION
  Report Type: 
  Country: None (occurrence: None)
  Receive Date: 20080618
  Receipt Date: 20080613
  Transmission Date: 20081010
  Serious: Yes (Other)
  Sender: FDA-Public Use
  Company Number: SE-PFIZER INC-2008049638

PATIENT
  Sex: Male

DRUGS (2)
  1. ALFADIL [Suspect]
     Indication: PROSTATOMEGALY
  2. ALFADIL [Suspect]
     Indication: HYPERTENSION

REACTIONS (1)
  - INGUINAL HERNIA [None]
